FAERS Safety Report 6317747-2 (Version None)
Quarter: 2009Q3

REPORT INFORMATION
  Report Type: 
  Country: None (occurrence: None)
  Receive Date: 20090820
  Receipt Date: 20090820
  Transmission Date: 20100115
  Serious: Yes (Hospitalization, Other)
  Sender: FDA-Public Use
  Company Number: None

PATIENT
  Age: 44 Year
  Sex: Female
  Weight: 87.9978 kg

DRUGS (1)
  1. CYMBALTA [Suspect]
     Indication: DEPRESSION
     Dosage: 30 THEN 60 THEN 90 MG TITRATE DAILY PO
     Route: 048

REACTIONS (9)
  - ASTHENIA [None]
  - DECREASED ACTIVITY [None]
  - DEPRESSION [None]
  - FEELINGS OF WORTHLESSNESS [None]
  - HEPATIC ENZYME INCREASED [None]
  - HYPERTENSION [None]
  - MALAISE [None]
  - PANCREATITIS CHRONIC [None]
  - SUICIDE ATTEMPT [None]
